FAERS Safety Report 6288447-2 (Version None)
Quarter: 2009Q3

REPORT INFORMATION
  Report Type: 
  Country: None (occurrence: None)
  Receive Date: 20090729
  Receipt Date: 20090722
  Transmission Date: 20100115
  Serious: Yes (Other)
  Sender: FDA-Public Use
  Company Number: A0799152A

PATIENT
  Age: 29 Year
  Sex: Female

DRUGS (3)
  1. TYKERB [Suspect]
     Dates: start: 20090401
  2. CAPECITABINE [Suspect]
     Dates: start: 20090401
  3. PHENYTOIN [Concomitant]

REACTIONS (3)
  - MECHANICAL URTICARIA [None]
  - PALMAR-PLANTAR ERYTHRODYSAESTHESIA SYNDROME [None]
  - SOMNOLENCE [None]
